FAERS Safety Report 21945403 (Version 3)
Quarter: 2025Q1

REPORT INFORMATION
  Report Type: Report from Study
  Country: US (occurrence: US)
  Receive Date: 20230202
  Receipt Date: 20250114
  Transmission Date: 20250408
  Serious: Yes (Life-Threatening)
  Sender: ROCHE
  Company Number: US-ROCHE-3276200

PATIENT
  Age: 55 Year
  Sex: Female

DRUGS (21)
  1. OCRELIZUMAB [Suspect]
     Active Substance: OCRELIZUMAB
     Indication: Multiple sclerosis
     Route: 065
     Dates: start: 20200811, end: 20200825
  2. OCRELIZUMAB [Suspect]
     Active Substance: OCRELIZUMAB
     Route: 065
     Dates: start: 20210225
  3. OCRELIZUMAB [Suspect]
     Active Substance: OCRELIZUMAB
     Route: 065
     Dates: start: 20210826
  4. OCRELIZUMAB [Suspect]
     Active Substance: OCRELIZUMAB
     Route: 065
     Dates: start: 20220224
  5. NORVASC [Concomitant]
     Active Substance: AMLODIPINE BESYLATE
     Dates: start: 20200507
  6. NEURONTIN [Concomitant]
     Active Substance: GABAPENTIN
     Dates: start: 20200623
  7. GLUCOPHAGE [Concomitant]
     Active Substance: METFORMIN HYDROCHLORIDE
     Dates: start: 20200622
  8. PRILOSEC [Concomitant]
     Active Substance: OMEPRAZOLE MAGNESIUM
     Dates: start: 20200610
  9. CELEXA [Concomitant]
     Active Substance: CITALOPRAM HYDROBROMIDE
     Dates: start: 20091215
  10. FLONASE [Concomitant]
     Active Substance: FLUTICASONE PROPIONATE
     Dates: start: 20200507
  11. PRAVACHOL [Concomitant]
     Active Substance: PRAVASTATIN SODIUM
     Dates: start: 20191021
  12. ALPHA LIPOIC ACID [Concomitant]
     Active Substance: .ALPHA.-LIPOIC ACID
     Dates: start: 20200805
  13. VITAMIN C [Concomitant]
     Active Substance: ASCORBIC ACID
     Dates: start: 20180913
  14. ASPIRIN [Concomitant]
     Active Substance: ASPIRIN
     Indication: Pain
     Dates: start: 20200424
  15. CALCIUM [Concomitant]
     Active Substance: CALCIUM
     Dates: start: 20100823
  16. CHOLECALCIFEROL [Concomitant]
     Active Substance: CHOLECALCIFEROL
     Dates: start: 20130131
  17. CYANOCOBALAMIN [Concomitant]
     Active Substance: CYANOCOBALAMIN
     Dates: start: 20200805
  18. FISH OIL [Concomitant]
     Active Substance: FISH OIL
     Dates: start: 20100823
  19. MAGNESIUM [Concomitant]
     Active Substance: MAGNESIUM
     Route: 048
     Dates: start: 20200424
  20. ZYRTEC [Concomitant]
     Active Substance: CETIRIZINE HYDROCHLORIDE
     Dates: start: 20090814
  21. BACLOFEN [Concomitant]
     Active Substance: BACLOFEN
     Indication: Multiple sclerosis
     Dates: start: 20230502

REACTIONS (1)
  - COVID-19 [Recovered/Resolved]

NARRATIVE: CASE EVENT DATE: 20221031
